FAERS Safety Report 7335306-X (Version None)
Quarter: 2011Q1

REPORT INFORMATION
  Report Type: 
  Country: None (occurrence: None)
  Receive Date: 20110307
  Receipt Date: 20110224
  Transmission Date: 20110831
  Serious: Yes (Hospitalization)
  Sender: FDA-Public Use
  Company Number: US-ASTRAZENECA-2011SE10521

PATIENT
  Age: 66 Year
  Sex: Female
  Weight: 68 kg

DRUGS (4)
  1. SEROQUEL [Suspect]
     Route: 048
     Dates: start: 20090101
  2. SEROQUEL [Suspect]
     Indication: BIPOLAR DISORDER
     Route: 048
     Dates: start: 20010101, end: 20090101
  3. SEROQUEL [Suspect]
     Route: 048
     Dates: start: 20110201, end: 20110201
  4. SEROQUEL [Suspect]
     Route: 048

REACTIONS (4)
  - BIPOLAR DISORDER [None]
  - DIZZINESS [None]
  - PALPITATIONS [None]
  - DRUG INEFFECTIVE [None]
